FAERS Safety Report 12309142 (Version 1)
Quarter: 2016Q2

REPORT INFORMATION
  Report Type: Spontaneous
  Country: US (occurrence: US)
  Receive Date: 20160427
  Receipt Date: 20160427
  Transmission Date: 20160815
  Serious: No
  Sender: FDA-Public Use
  Company Number: US-GLENMARK PHARMACEUTICALS INC, USA.-2015GMK019898

PATIENT
  Age: 54 Year
  Sex: Female

DRUGS (6)
  1. RETINOID [Suspect]
     Active Substance: UNSPECIFIED INGREDIENT
     Indication: MALIGNANT MELANOMA STAGE IV
  2. IMIQUIMOD CREAM [Suspect]
     Active Substance: IMIQUIMOD
     Indication: MALIGNANT MELANOMA STAGE IV
  3. INTERLEUKIN-2 [Suspect]
     Active Substance: ALDESLEUKIN
     Indication: MALIGNANT MELANOMA STAGE IV
  4. IMIQUIMOD CREAM [Suspect]
     Active Substance: IMIQUIMOD
     Indication: METASTATIC MALIGNANT MELANOMA
     Dosage: UNK UNK, QD
     Route: 061
  5. INTERLEUKIN-2 [Suspect]
     Active Substance: ALDESLEUKIN
     Indication: METASTATIC MALIGNANT MELANOMA
     Dosage: 7 MILLION IU, UNK
     Route: 026
     Dates: start: 201407
  6. RETINOID [Suspect]
     Active Substance: UNSPECIFIED INGREDIENT
     Indication: METASTATIC MALIGNANT MELANOMA
     Dosage: UNK, QD
     Route: 061

REACTIONS (6)
  - Off label use [Unknown]
  - Malignant neoplasm progression [None]
  - Therapeutic response unexpected [Unknown]
  - Nausea [Unknown]
  - Depression [Unknown]
  - Toxicity to various agents [None]
